FAERS Safety Report 5840477-8 (Version None)
Quarter: 2008Q3

REPORT INFORMATION
  Report Type: 
  Country: None (occurrence: None)
  Receive Date: 20080807
  Receipt Date: 20080807
  Transmission Date: 20090109
  Serious: Yes (Life-Threatening)
  Sender: FDA-Public Use
  Company Number: None

PATIENT
  Age: 46 Year
  Sex: Female
  Weight: 70.3075 kg

DRUGS (1)
  1. AMITIZA [Suspect]
     Indication: CONSTIPATION
     Dosage: 1 DAILY PO
     Route: 048
     Dates: start: 20070329, end: 20070330

REACTIONS (10)
  - ANAEMIA [None]
  - BLOOD PRESSURE INCREASED [None]
  - GASTROOESOPHAGEAL REFLUX DISEASE [None]
  - HEART RATE IRREGULAR [None]
  - HYPERSENSITIVITY [None]
  - MENORRHAGIA [None]
  - PALPITATIONS [None]
  - RHINORRHOEA [None]
  - SINUS DISORDER [None]
  - SYNCOPE [None]
